FAERS Safety Report 11546136 (Version 1)
Quarter: 2015Q3

REPORT INFORMATION
  Report Type: Spontaneous
  Country: US (occurrence: US)
  Receive Date: 20150903
  Receipt Date: 20150903
  Transmission Date: 20151125
  Serious: No
  Sender: FDA-Public Use
  Company Number: US-ELI_LILLY_AND_COMPANY-US201206002366

PATIENT
  Sex: Female

DRUGS (7)
  1. ZETIA                                   /USA/ [Concomitant]
     Dosage: 10 DF, QD
  2. AMLODIPINE [Concomitant]
     Active Substance: AMLODIPINE BESYLATE
     Dosage: 10 MG, QD
  3. SIMVASTATIN. [Concomitant]
     Active Substance: SIMVASTATIN
     Dosage: 40 DF, QD
  4. ATACAND [Concomitant]
     Active Substance: CANDESARTAN CILEXETIL
     Dosage: 32 MG, QD
  5. HUMALOG [Suspect]
     Active Substance: INSULIN LISPRO
     Indication: TYPE 2 DIABETES MELLITUS
     Dosage: 8 U, PRN
     Route: 058
     Dates: start: 2001
  6. LEVOTHYROXINE. [Concomitant]
     Active Substance: LEVOTHYROXINE
     Dosage: 25 UG, QD
  7. LANTUS [Concomitant]
     Active Substance: INSULIN GLARGINE
     Dosage: 32 DF, EACH EVENING

REACTIONS (3)
  - Cataract [Unknown]
  - Injection site haemorrhage [Unknown]
  - Underdose [Unknown]
